FAERS Safety Report 5479517-7 (Version None)
Quarter: 2007Q4

REPORT INFORMATION
  Report Type: 
  Country: None (occurrence: None)
  Receive Date: 20071008
  Receipt Date: 20070927
  Transmission Date: 20080405
  Serious: Yes (Disabling)
  Sender: FDA-Public Use
  Company Number: FR-ROCHE-443945

PATIENT
  Age: 16 Year
  Sex: Female
  Weight: 39.5 kg

DRUGS (9)
  1. ISOTRETINOIN [Suspect]
     Indication: ACNE
     Dosage: 7 MONTHS OF TREATMENT.
     Route: 048
     Dates: start: 20040915, end: 20050415
  2. ISOTRETINOIN [Suspect]
     Route: 048
     Dates: start: 20051201
  3. CREON [Concomitant]
  4. TOCO [Concomitant]
  5. UVESTEROL [Concomitant]
  6. RETINOL [Concomitant]
     Dosage: REPORTED AS A313.
  7. ZITHROMAX [Concomitant]
     Dosage: REPORTED AS: ZITHROMAX 250; RESTARTED EST. 20 DECEMBER 2005.
  8. BACTRIM [Concomitant]
  9. BRISTOPEN [Concomitant]

REACTIONS (1)
  - MUSCULAR WEAKNESS [None]
